FAERS Safety Report 18435031 (Version 2)
Quarter: 2020Q4

REPORT INFORMATION
  Report Type: Spontaneous
  Country: JP (occurrence: JP)
  Receive Date: 20201028
  Receipt Date: 20201223
  Transmission Date: 20210114
  Serious: Yes (Hospitalization, Disabling, Other)
  Sender: FDA-Public Use
  Company Number: NVSJ2020JP010842

PATIENT
  Age: 50 Year
  Sex: Female

DRUGS (1)
  1. ARRANON [Suspect]
     Active Substance: NELARABINE
     Indication: T-CELL LYMPHOMA
     Dosage: UNK
     Route: 041
     Dates: start: 202008, end: 202009

REACTIONS (3)
  - Visual impairment [Not Recovered/Not Resolved]
  - Quadriplegia [Not Recovered/Not Resolved]
  - Hypoaesthesia [Unknown]

NARRATIVE: CASE EVENT DATE: 202010
